FAERS Safety Report 9243184 (Version 2)
Quarter: 2013Q3

REPORT INFORMATION
  Report Type: Spontaneous
  Country: DE (occurrence: DE)
  Receive Date: 20130419
  Receipt Date: 20130807
  Transmission Date: 20140515
  Serious: Yes (Death, Hospitalization)
  Sender: FDA-Public Use
  Company Number: PHHY2013DE033673

PATIENT
  Age: 82 Year
  Sex: Female

DRUGS (12)
  1. GRIPPEIMPFSTOFF CHIRON [Suspect]
     Indication: IMMUNISATION
     Dosage: 1 DF
     Dates: start: 20051128
  2. TETANOL PUR INN [Suspect]
     Indication: IMMUNISATION
     Dosage: 1 DF
     Route: 048
  3. MUTAGRIP [Suspect]
     Indication: IMMUNISATION
     Route: 048
     Dates: start: 20041130
  4. IBUPROFEN [Concomitant]
     Dosage: UNK UKN, UNK
     Route: 048
     Dates: end: 20060122
  5. BONEFOS [Concomitant]
     Indication: OSTEOPOROSIS
     Dosage: UNK UKN, ONCE A WEEK
     Route: 048
     Dates: start: 20000701, end: 20060122
  6. FOSAMAX [Concomitant]
     Dosage: UNK UKN, UNK
     Route: 048
     Dates: end: 20060122
  7. FOSAVANCE [Concomitant]
     Dosage: UNK UKN, UNK
     Route: 048
     Dates: end: 20060122
  8. LISINOPRIL [Concomitant]
     Dosage: UNK UKN, ONCE DAILY
     Route: 048
  9. HCT BETA [Concomitant]
     Dosage: UNK UKN, ONCE DAILY
     Route: 048
  10. CALCIUM [Concomitant]
     Dosage: UNK UKN, ONCE DAILY
     Route: 048
  11. VITAMIN D3 [Concomitant]
     Dosage: UNK UKN, QD
     Route: 048
  12. PANTOPRAZOL [Concomitant]
     Dosage: UNK UKN, QD
     Route: 048

REACTIONS (31)
  - Colitis [Unknown]
  - Urinary hesitation [Unknown]
  - Nausea [Unknown]
  - Incorrect route of drug administration [Unknown]
  - Face injury [Fatal]
  - Non-cardiac chest pain [Fatal]
  - Wound [Fatal]
  - Haemarthrosis [Fatal]
  - Joint swelling [Fatal]
  - Concussion [Fatal]
  - Pneumonia bacterial [Fatal]
  - Vomiting [Fatal]
  - Dyspnoea [Fatal]
  - Diarrhoea [Fatal]
  - Mucous stools [Fatal]
  - Respiratory distress [Fatal]
  - Oesophagitis [Fatal]
  - Oesophageal discomfort [Fatal]
  - Dysphagia [Fatal]
  - Bronchitis [Fatal]
  - Osteonecrosis of jaw [Fatal]
  - Bone loss [Fatal]
  - Fall [Fatal]
  - Fungal infection [Fatal]
  - Confusional state [Fatal]
  - Renal cyst [Fatal]
  - Ear pain [Fatal]
  - Breast pain [Fatal]
  - Chest pain [Fatal]
  - Acute respiratory failure [Unknown]
  - Gastrointestinal inflammation [Unknown]
